FAERS Safety Report 7723839-3 (Version None)
Quarter: 2011Q3

REPORT INFORMATION
  Report Type: 
  Country: None (occurrence: None)
  Receive Date: 20110901
  Receipt Date: 20110826
  Transmission Date: 20111222
  Serious: Yes (Other)
  Sender: FDA-Public Use
  Company Number: US-BAYER-2011-059322

PATIENT
  Age: 58 Year
  Sex: Male

DRUGS (4)
  1. METOPROLOL TARTRATE [Concomitant]
  2. NEXAVAR [Suspect]
     Dosage: 1 AM AND 1 PM
     Dates: start: 20110715
  3. NEXAVAR [Suspect]
     Indication: HEPATIC NEOPLASM MALIGNANT
     Dosage: 400 MG, BID (2 AM AND 2 PM)
     Route: 048
     Dates: start: 20110705, end: 20110715
  4. NEXAVAR [Suspect]
     Dosage: 400 MG, BID 2 AM AND 2 PM
     Dates: start: 20110721

REACTIONS (17)
  - BURNING SENSATION [None]
  - ERYTHEMA [None]
  - EPISTAXIS [None]
  - NAUSEA [None]
  - DIARRHOEA [None]
  - DECREASED APPETITE [None]
  - URINARY RETENTION [None]
  - DYSURIA [None]
  - VOMITING [None]
  - POLLAKIURIA [None]
  - BLOOD PRESSURE INCREASED [None]
  - AURICULAR SWELLING [None]
  - ABDOMINAL PAIN [None]
  - HEADACHE [None]
  - HYPERAESTHESIA [None]
  - FLUSHING [None]
  - PRURITUS [None]
